FAERS Safety Report 8029432-X (Version None)
Quarter: 2012Q1

REPORT INFORMATION
  Report Type: 
  Country: None (occurrence: None)
  Receive Date: 20120107
  Receipt Date: 20111214
  Transmission Date: 20120608
  Serious: No
  Sender: FDA-Public Use
  Company Number: US-ROXANE LABORATORIES, INC.-2011-RO-01813RO

PATIENT
  Sex: Male

DRUGS (7)
  1. PREDNISONE TAB [Suspect]
     Dosage: 5 MG
     Route: 048
  2. PREDNISONE TAB [Suspect]
     Indication: BLOOD COUNT ABNORMAL
     Dosage: 10 MG
     Route: 048
  3. COUMADIN [Concomitant]
     Dosage: 6 MG
  4. NEXIUM [Concomitant]
     Dosage: 40 MG
  5. FOLIC ACID [Concomitant]
  6. LOVAZA [Concomitant]
     Dosage: 2 MG
  7. GLUCOTROL [Concomitant]
     Indication: DIABETES MELLITUS
     Dosage: 10 MG

REACTIONS (1)
  - RIB FRACTURE [None]
